FAERS Safety Report 19903795 (Version 1)
Quarter: 2021Q4

REPORT INFORMATION
  Report Type: Spontaneous
  Country: US (occurrence: US)
  Receive Date: 20211001
  Receipt Date: 20211001
  Transmission Date: 20220303
  Serious: No
  Sender: FDA-Public Use
  Company Number: US-BAYER-2021A218964

PATIENT
  Age: 61 Year
  Sex: Male
  Weight: 91.63 kg

DRUGS (5)
  1. ALEVE [Suspect]
     Active Substance: NAPROXEN SODIUM
     Indication: Peripheral swelling
  2. TYLENOL ARTHRITIS PAIN [Suspect]
     Active Substance: ACETAMINOPHEN
     Indication: Peripheral swelling
     Dosage: 2 DF
     Route: 048
  3. VOLTARENE (DICLOFENAC SODIUM) [Suspect]
     Active Substance: DICLOFENAC SODIUM
     Indication: Peripheral swelling
  4. MELOXICAM [Suspect]
     Active Substance: MELOXICAM
     Indication: Peripheral swelling
  5. UNSPECIFIED INGREDIENT [Suspect]
     Active Substance: UNSPECIFIED INGREDIENT
     Indication: Peripheral swelling

REACTIONS (1)
  - Drug ineffective for unapproved indication [None]
